FAERS Safety Report 15965446 (Version 1)
Quarter: 2019Q1

REPORT INFORMATION
  Report Type: Spontaneous
  Country: ES (occurrence: ES)
  Receive Date: 20190215
  Receipt Date: 20190215
  Transmission Date: 20190418
  Serious: Yes (Hospitalization, Other)
  Sender: FDA-Public Use
  Company Number: ES-AMGEN-ESPSP2019019889

PATIENT
  Age: 79 Year
  Sex: Female

DRUGS (2)
  1. PROLIA [Suspect]
     Active Substance: DENOSUMAB
     Indication: OSTEOPOROSIS
     Dosage: UNK
     Route: 065
  2. HIDROFEROL [Concomitant]
     Active Substance: CALCIFEDIOL

REACTIONS (4)
  - Parkinson^s disease [Unknown]
  - Arthralgia [Not Recovered/Not Resolved]
  - Atypical femur fracture [Unknown]
  - Gait disturbance [Unknown]
